FAERS Safety Report 6771972-5 (Version None)
Quarter: 2010Q2

REPORT INFORMATION
  Report Type: 
  Country: None (occurrence: None)
  Receive Date: 20100616
  Receipt Date: 20090429
  Transmission Date: 20101027
  Serious: No
  Sender: FDA-Public Use
  Company Number: US-ASTRAZENECA-2009UW10723

PATIENT
  Sex: Female

DRUGS (5)
  1. RHINOCORT [Suspect]
     Route: 045
  2. SEROQUEL [Suspect]
     Route: 048
  3. PLENDIL [Suspect]
     Route: 048
  4. NEXIUM [Suspect]
     Route: 048
  5. ANTIBIOTICS [Concomitant]

REACTIONS (1)
  - UPPER RESPIRATORY TRACT INFECTION [None]
